FAERS Safety Report 19173279 (Version 1)
Quarter: 2021Q2

REPORT INFORMATION
  Report Type: Spontaneous
  Country: GB (occurrence: GB)
  Receive Date: 20210423
  Receipt Date: 20210423
  Transmission Date: 20210717
  Serious: Yes (Other)
  Sender: FDA-Public Use
  Company Number: GB-TEVA-2021-GB-1902613

PATIENT
  Age: 23 Year
  Sex: Female
  Weight: 75 kg

DRUGS (6)
  1. CLONAZEPAM. [Concomitant]
     Active Substance: CLONAZEPAM
  2. VENLAFAXINE [Concomitant]
     Active Substance: VENLAFAXINE HYDROCHLORIDE
  3. LYMECYCLINE [Concomitant]
     Active Substance: LYMECYCLINE
  4. PROPRANOLOL [Concomitant]
     Active Substance: PROPRANOLOL HYDROCHLORIDE
  5. ARIPIPRAZOLE. [Suspect]
     Active Substance: ARIPIPRAZOLE
     Dosage: 10 MG
     Route: 048
     Dates: start: 20210315
  6. RIGEVIDON [Concomitant]

REACTIONS (3)
  - Transient ischaemic attack [Recovered/Resolved with Sequelae]
  - Facial paresis [Unknown]
  - Tremor [Unknown]

NARRATIVE: CASE EVENT DATE: 20210320
